FAERS Safety Report 13776812 (Version 2)
Quarter: 2017Q4

REPORT INFORMATION
  Report Type: Spontaneous
  Country: NL (occurrence: NL)
  Receive Date: 20170721
  Receipt Date: 20171031
  Transmission Date: 20180320
  Serious: Yes (Death)
  Sender: FDA-Public Use
  Company Number: NL-NOVOPROD-554205

PATIENT
  Age: 75 Year
  Sex: Female

DRUGS (3)
  1. OBIZUR [Concomitant]
     Active Substance: ANTIHEMOPHILIC FACTOR PORCINE, B-DOMAIN TRUNCATED RECOMBINANT
     Dosage: UNK
     Route: 065
  2. NOVOSEVEN [Suspect]
     Active Substance: COAGULATION FACTOR VIIA RECOMBINANT HUMAN
     Indication: ACQUIRED HAEMOPHILIA
     Dosage: 270 ?G/KG
     Route: 042
     Dates: start: 20170414, end: 2017
  3. NOVOSEVEN [Suspect]
     Active Substance: COAGULATION FACTOR VIIA RECOMBINANT HUMAN
     Indication: INTESTINAL HAEMORRHAGE
     Dosage: 90 ?G/KG
     Route: 042
     Dates: start: 2017, end: 20170511

REACTIONS (3)
  - Haemorrhage [Fatal]
  - Off label use [Unknown]
  - Drug effect incomplete [Fatal]
